FAERS Safety Report 10578160 (Version 1)
Quarter: 2014Q4

REPORT INFORMATION
  Report Type: Spontaneous
  Country: US (occurrence: None)
  Receive Date: 20141111
  Receipt Date: 20141111
  Transmission Date: 20150529
  Serious: Yes (Hospitalization)
  Sender: FDA-Public Use
  Company Number: None

PATIENT
  Age: 17 Year
  Sex: Male
  Weight: 102.7 kg

DRUGS (3)
  1. METHOTREXATE [Suspect]
     Active Substance: METHOTREXATE
     Dates: end: 20141031
  2. ONCASPAR [Suspect]
     Active Substance: PEGASPARGASE
     Dosage: 5700 IU
     Dates: end: 20141031
  3. PREDNISONE. [Suspect]
     Active Substance: PREDNISONE
     Dates: end: 20141031

REACTIONS (3)
  - Superior sagittal sinus thrombosis [None]
  - Cerebral infarction [None]
  - Cerebral haemorrhage [None]

NARRATIVE: CASE EVENT DATE: 20141031
